FAERS Safety Report 21075358 (Version 5)
Quarter: 2022Q3

REPORT INFORMATION
  Report Type: Spontaneous
  Country: CA (occurrence: None)
  Receive Date: 20220713
  Receipt Date: 20220802
  Transmission Date: 20221027
  Serious: Yes (Other)
  Sender: FDA-Public Use
  Company Number: CA-PFIZER INC-202200437898

PATIENT
  Age: 59 Year
  Sex: Female

DRUGS (4)
  1. METHOTREXATE [Suspect]
     Active Substance: METHOTREXATE
     Indication: Product used for unknown indication
     Route: 065
     Dates: start: 2014
  2. METHOTREXATE [Suspect]
     Active Substance: METHOTREXATE
     Route: 065
  3. IRON [Concomitant]
     Active Substance: IRON
     Route: 065
  4. ABRILADA [Concomitant]
     Active Substance: ADALIMUMAB-AFZB
     Indication: Crohn^s disease
     Route: 058
     Dates: start: 20220414, end: 2022

REACTIONS (19)
  - Urinary tract infection bacterial [Recovered/Resolved]
  - Haematochezia [Unknown]
  - Crohn^s disease [Unknown]
  - Drug ineffective [Unknown]
  - Pain [Not Recovered/Not Resolved]
  - Vaginal infection [Not Recovered/Not Resolved]
  - Diarrhoea [Not Recovered/Not Resolved]
  - Anal incontinence [Unknown]
  - Haemorrhoids [Unknown]
  - Illness [Unknown]
  - Sinusitis [Not Recovered/Not Resolved]
  - Bronchitis [Unknown]
  - Defaecation urgency [Unknown]
  - Hypertension [Unknown]
  - Anxiety [Unknown]
  - COVID-19 [Not Recovered/Not Resolved]
  - Nasal congestion [Not Recovered/Not Resolved]
  - Cough [Not Recovered/Not Resolved]
  - Ear congestion [Not Recovered/Not Resolved]

NARRATIVE: CASE EVENT DATE: 20220101
